FAERS Safety Report 6735663-9 (Version None)
Quarter: 2010Q2

REPORT INFORMATION
  Report Type: 
  Country: None (occurrence: None)
  Receive Date: 20100521
  Receipt Date: 20100517
  Transmission Date: 20101027
  Serious: Yes (Other)
  Sender: FDA-Public Use
  Company Number: PHHY2010JP32310

PATIENT
  Weight: 90 kg

DRUGS (3)
  1. NEORAL [Suspect]
     Indication: PSORIASIS
     Dosage: 100 MG/DAY
     Route: 048
  2. NEORAL [Suspect]
     Dosage: 50 MG, (MORNING AND EVENING)
     Route: 048
  3. AMLODIPINE BESYLATE [Concomitant]
     Route: 048

REACTIONS (3)
  - BLOOD PRESSURE INCREASED [None]
  - HEADACHE [None]
  - OROPHARYNGEAL PAIN [None]
